FAERS Safety Report 23847296 (Version 1)
Quarter: 2024Q2

REPORT INFORMATION
  Report Type: Report from Study
  Country: US (occurrence: US)
  Receive Date: 20240513
  Receipt Date: 20240513
  Transmission Date: 20240716
  Serious: Yes (Other)
  Sender: FDA-Public Use
  Company Number: US-ABBVIE-5752003

PATIENT
  Sex: Female

DRUGS (1)
  1. HUMIRA [Suspect]
     Active Substance: ADALIMUMAB
     Indication: Psoriatic arthropathy
     Dosage: CITRATE FREE?FORM STRENGTH 40 MILLIGRAMS
     Route: 058
     Dates: start: 20160101

REACTIONS (8)
  - Macular hole [Unknown]
  - Dry skin [Unknown]
  - Retinal disorder [Unknown]
  - Seasonal allergy [Unknown]
  - Injection site pain [Recovered/Resolved]
  - Dry mouth [Unknown]
  - Peripheral coldness [Unknown]
  - Foreign body in eye [Unknown]
